FAERS Safety Report 23848448 (Version 1)
Quarter: 2024Q2

REPORT INFORMATION
  Report Type: Spontaneous
  Country: US (occurrence: US)
  Receive Date: 20240513
  Receipt Date: 20240513
  Transmission Date: 20240716
  Serious: No
  Sender: FDA-Public Use
  Company Number: US-PFIZER INC-202400104927

PATIENT
  Age: 47 Year
  Sex: Female

DRUGS (7)
  1. XELJANZ XR [Suspect]
     Active Substance: TOFACITINIB CITRATE
     Dosage: 11 MG, 1X/DAY
     Route: 048
  2. NITROGLYCERIN [Concomitant]
     Active Substance: NITROGLYCERIN
     Dosage: (PATCH)
  3. SILDENAFIL CITRATE [Concomitant]
     Active Substance: SILDENAFIL CITRATE
  4. PREDNISONE [Concomitant]
     Active Substance: PREDNISONE
  5. IBUPROFEN [Concomitant]
     Active Substance: IBUPROFEN
  6. VITAMIN E [Concomitant]
     Active Substance: .ALPHA.-TOCOPHEROL
  7. OMEPRAZOLE [Concomitant]
     Active Substance: DONEPEZIL HYDROCHLORIDE\OMEPRAZOLE\OMEPRAZOLE MAGNESIUM

REACTIONS (2)
  - Drug ineffective [Unknown]
  - Condition aggravated [Unknown]
